FAERS Safety Report 17731649 (Version 1)
Quarter: 2020Q2

REPORT INFORMATION
  Report Type: Spontaneous
  Country: PL (occurrence: PL)
  Receive Date: 20200501
  Receipt Date: 20200501
  Transmission Date: 20200714
  Serious: Yes (Hospitalization)
  Sender: FDA-Public Use
  Company Number: PL-SUN PHARMACEUTICAL INDUSTRIES LTD-2020R1-245286

PATIENT
  Age: 66 Year
  Sex: Female
  Weight: 95 kg

DRUGS (3)
  1. FUROSEMIDE. [Concomitant]
     Active Substance: FUROSEMIDE
     Indication: ACUTE RESPIRATORY FAILURE
     Dosage: 120 MILLIGRAM, DAILY,1.76 MICROG/KG/MINUTE (120 MG/DAY)
     Route: 065
  2. METOPROLOL. [Suspect]
     Active Substance: METOPROLOL
     Indication: ACUTE RESPIRATORY FAILURE
     Dosage: UNK
     Route: 048
  3. DOBUTAMINE [Suspect]
     Active Substance: DOBUTAMINE HYDROCHLORIDE
     Indication: ACUTE RESPIRATORY FAILURE
     Dosage: 10 MICROG/KG/MIN
     Route: 065

REACTIONS (3)
  - Condition aggravated [Unknown]
  - Bradycardia [Unknown]
  - Drug ineffective [Unknown]
